FAERS Safety Report 7214724-4 (Version None)
Quarter: 2011Q1

REPORT INFORMATION
  Report Type: 
  Country: None (occurrence: None)
  Receive Date: 20110107
  Receipt Date: 20091230
  Transmission Date: 20110831
  Serious: No
  Sender: FDA-Public Use
  Company Number: A0837083A

PATIENT
  Age: 57 Year
  Sex: Female

DRUGS (7)
  1. VITAMIN D [Concomitant]
  2. OMEPRAZOLE [Concomitant]
  3. LOVAZA [Suspect]
     Indication: BLOOD CHOLESTEROL INCREASED
     Dosage: 2CAP TWICE PER DAY
     Route: 048
     Dates: start: 20090711
  4. LISINOPRIL [Concomitant]
  5. LYRICA [Concomitant]
  6. METFORMIN [Concomitant]
  7. ASPIRIN [Concomitant]

REACTIONS (3)
  - THERAPEUTIC RESPONSE UNEXPECTED [None]
  - MEDICATION RESIDUE [None]
  - DRY SKIN [None]
